FAERS Safety Report 5638929-9 (Version None)
Quarter: 2008Q1

REPORT INFORMATION
  Report Type: 
  Country: None (occurrence: None)
  Receive Date: 20080226
  Receipt Date: 20080221
  Transmission Date: 20080703
  Serious: Yes (Other)
  Sender: FDA-Public Use
  Company Number: GB-ALLERGAN-0802083US

PATIENT
  Sex: Female
  Weight: 59 kg

DRUGS (4)
  1. TIMOLOL MALEATE 0.5% SOL [Suspect]
     Indication: GLAUCOMA
     Dosage: UNK, UNK
     Route: 047
     Dates: start: 20070901
  2. BETNESOL [Concomitant]
     Indication: SURGERY
     Dosage: 4 DF, UNK
     Dates: start: 20070901
  3. CELLUVISC [Concomitant]
     Indication: DRY EYE
  4. CHLORAMPHENICOL [Concomitant]
     Indication: SURGERY
     Dosage: 1 DF, UNK
     Dates: start: 20070901

REACTIONS (1)
  - KERATOPATHY [None]
